FAERS Safety Report 20825710 (Version 18)
Quarter: 2022Q3

REPORT INFORMATION
  Report Type: Report from Study
  Country: CN (occurrence: None)
  Receive Date: 20220513
  Receipt Date: 20220930
  Transmission Date: 20221027
  Serious: Yes (Hospitalization)
  Sender: FDA-Public Use
  Company Number: CN-Eisai Medical Research-EC-2022-114655

PATIENT
  Age: 47 Year
  Sex: Male
  Weight: 54.5 kg

DRUGS (9)
  1. LENVATINIB [Suspect]
     Active Substance: LENVATINIB
     Indication: Oesophageal cancer metastatic
     Route: 048
     Dates: start: 20220420, end: 20220507
  2. LENVATINIB [Suspect]
     Active Substance: LENVATINIB
     Dosage: STARTING DOSE AT 6 MG, QD, FLUCTUATED DOSAGE
     Route: 048
     Dates: start: 20220610, end: 20220721
  3. PEMBROLIZUMAB [Suspect]
     Active Substance: PEMBROLIZUMAB
     Indication: Oesophageal cancer metastatic
     Route: 041
     Dates: start: 20220420, end: 20220420
  4. PEMBROLIZUMAB [Suspect]
     Active Substance: PEMBROLIZUMAB
     Route: 041
     Dates: start: 20220610, end: 20220610
  5. CISPLATIN [Suspect]
     Active Substance: CISPLATIN
     Indication: Oesophageal cancer metastatic
     Dosage: UNKNOWN DOSE
     Route: 042
     Dates: start: 20220420, end: 20220420
  6. CISPLATIN [Suspect]
     Active Substance: CISPLATIN
     Dosage: UNKNOWN DOSE, DOSE REDUCED
     Route: 042
     Dates: start: 20220521, end: 20220705
  7. FLUOROURACIL [Suspect]
     Active Substance: FLUOROURACIL
     Indication: Oesophageal cancer metastatic
     Dosage: UNKNOWN DOSE
     Route: 042
     Dates: start: 20220420, end: 20220424
  8. FLUOROURACIL [Suspect]
     Active Substance: FLUOROURACIL
     Dosage: UNKNOWN DOSE, DOSE REDUCED
     Route: 042
     Dates: start: 20220521, end: 20220708
  9. ESOMEPRAZOLE SODIUM [Concomitant]
     Active Substance: ESOMEPRAZOLE SODIUM
     Route: 042
     Dates: start: 20220407, end: 20220518

REACTIONS (1)
  - Oesophageal fistula [Recovering/Resolving]

NARRATIVE: CASE EVENT DATE: 20220501
